FAERS Safety Report 4638410-X (Version None)
Quarter: 2005Q2

REPORT INFORMATION
  Report Type: 
  Country: None (occurrence: None)
  Receive Date: 20050415
  Receipt Date: 20050411
  Transmission Date: 20051028
  Serious: Yes (Other)
  Sender: FDA-Public Use
  Company Number: 200510266BVD

PATIENT
  Age: 51 Year
  Sex: Female

DRUGS (2)
  1. AVALOX           (MOXIFLOXACIN HYDROCHLORIDE) [Suspect]
     Indication: URINARY TRACT INFECTION
     Dosage: 400 MG DAILY , ORAL
     Route: 048
  2. AVALOX           (MOXIFLOXACIN HYDROCHLORIDE) [Suspect]
     Indication: URINARY TRACT INFECTION
     Dosage: 400 MG DAILY , ORAL
     Route: 048

REACTIONS (1)
  - ASEPTIC NECROSIS BONE [None]
